FAERS Safety Report 5598236-X (Version None)
Quarter: 2007Q4

REPORT INFORMATION
  Report Type: 
  Country: None (occurrence: None)
  Receive Date: 20071226
  Receipt Date: 20070924
  Transmission Date: 20080405
  Serious: No
  Sender: FDA-Public Use
  Company Number: 2007PV033477

PATIENT
  Age: 46 Year
  Sex: Female

DRUGS (7)
  1. SYMLIN [Suspect]
     Indication: TYPE 1 DIABETES MELLITUS
     Dosage: 60, 15 MCG, TID, SC
     Route: 058
     Dates: start: 20070201, end: 20070101
  2. SYMLIN [Suspect]
     Indication: TYPE 1 DIABETES MELLITUS
     Dosage: 60, 15 MCG, TID, SC
     Route: 058
     Dates: start: 20070101, end: 20070301
  3. SYMLIN [Suspect]
     Indication: TYPE 1 DIABETES MELLITUS
     Dosage: 60, 15 MCG, TID, SC
     Route: 058
     Dates: start: 20070301, end: 20070910
  4. NOVOLOG [Concomitant]
  5. ACETYLSALICYLIC ACID SRT [Concomitant]
  6. LEVOXYL [Concomitant]
  7. VITAMIN CAP [Concomitant]

REACTIONS (7)
  - ANXIETY [None]
  - CHILLS [None]
  - DISORIENTATION [None]
  - MENTAL IMPAIRMENT [None]
  - NERVOUSNESS [None]
  - PARANOIA [None]
  - THYROID FUNCTION TEST ABNORMAL [None]
